FAERS Safety Report 15332240 (Version 2)
Quarter: 2020Q4

REPORT INFORMATION
  Report Type: Report from Study
  Country: US (occurrence: US)
  Receive Date: 20180829
  Receipt Date: 20201001
  Transmission Date: 20210113
  Serious: Yes (Other)
  Sender: FDA-Public Use
  Company Number: US-ALEXION PHARMACEUTICALS INC.-A201810752

PATIENT
  Sex: Female

DRUGS (1)
  1. SOLIRIS [Suspect]
     Active Substance: ECULIZUMAB
     Indication: MYASTHENIA GRAVIS
     Dosage: UNK
     Route: 065

REACTIONS (6)
  - Dyspnoea [Unknown]
  - Orthopnoea [Unknown]
  - Choking [Unknown]
  - Stress [Unknown]
  - Asthenia [Not Recovered/Not Resolved]
  - Cough [Unknown]
